FAERS Safety Report 4515606-9 (Version None)
Quarter: 2004Q4

REPORT INFORMATION
  Report Type: 
  Country: None (occurrence: None)
  Receive Date: 20041126
  Receipt Date: 20041112
  Transmission Date: 20050328
  Serious: Yes (Hospitalization, Disabling, Other)
  Sender: FDA-Public Use
  Company Number: 2004094563

PATIENT
  Sex: Female
  Weight: 115 kg

DRUGS (5)
  1. SOMATROPIN (SOMATROPIN) [Suspect]
     Indication: HYPOPITUITARISM
     Dosage: 0.6 MG (0.6 MG, DAILY), SUBCUTANEOUS
     Route: 058
     Dates: end: 20040415
  2. HYDROCORTISONE [Concomitant]
  3. BROMOCRIPTINE MESYLATE [Concomitant]
  4. EUGYNON (ETHINYLESTRADIOL, LEVONORGESTREL) [Concomitant]
  5. LEVOTHYROXINE SODIUM [Concomitant]

REACTIONS (1)
  - BREAST CANCER FEMALE [None]
